FAERS Safety Report 7120216-3 (Version None)
Quarter: 2010Q4

REPORT INFORMATION
  Report Type: 
  Country: None (occurrence: None)
  Receive Date: 20101123
  Receipt Date: 20101115
  Transmission Date: 20110411
  Serious: Yes (Hospitalization)
  Sender: FDA-Public Use
  Company Number: GB-AMGEN-GBRSP2010000687

PATIENT

DRUGS (7)
  1. NEULASTA [Suspect]
     Indication: PRODUCT USED FOR UNKNOWN INDICATION
     Dosage: 6 MG, UNK
     Route: 058
     Dates: start: 20101012
  2. RITUXIMAB [Concomitant]
     Indication: CHEMOTHERAPY
  3. CYCLOPHOSPHAMIDE [Concomitant]
     Indication: CHEMOTHERAPY
  4. PREDNISOLONE [Concomitant]
     Indication: CHEMOTHERAPY
  5. EPIRUBICIN [Concomitant]
     Indication: BREAST CANCER
  6. CYCLOPHOSPHAMIDE [Concomitant]
     Indication: BREAST CANCER
  7. 5 FU [Concomitant]
     Indication: BREAST CANCER

REACTIONS (1)
  - NEUTROPENIA [None]
